FAERS Safety Report 8610796-0 (Version None)
Quarter: 2012Q3

REPORT INFORMATION
  Report Type: 
  Country: None (occurrence: None)
  Receive Date: 20120822
  Receipt Date: 20120808
  Transmission Date: 20120928
  Serious: Yes (Hospitalization)
  Sender: FDA-Public Use
  Company Number: BR-RANBAXY-2012RR-59022

PATIENT
  Age: 28 Year
  Sex: Male

DRUGS (8)
  1. GANCICLOVIR [Suspect]
     Dosage: 5 MG/KG ON ALTERNATE DAYS
     Route: 042
  2. GANCICLOVIR [Suspect]
     Indication: CYTOMEGALOVIRUS INFECTION
     Dosage: 5 MG/KG, DAILY
     Route: 042
  3. GANCICLOVIR [Suspect]
     Dosage: UNK
     Route: 042
  4. GANCICLOVIR [Suspect]
     Indication: PROPHYLAXIS
     Dosage: 5 MG/KG, BID
     Route: 042
  5. GANCICLOVIR [Suspect]
     Dosage: UNK
     Route: 042
  6. MYCOPHENOLATE MEFETIL [Suspect]
     Indication: IMMUNOSUPPRESSANT DRUG THERAPY
     Dosage: 1.5 MG/DAY
     Route: 065
  7. GANCICLOVIR [Suspect]
     Dosage: 5 MG/KG, BID
  8. GANCICLOVIR [Suspect]
     Dosage: 1000 MG, BID
     Route: 048

REACTIONS (6)
  - CYTOMEGALOVIRUS INFECTION [None]
  - THROMBOCYTOPENIA [None]
  - ANAEMIA [None]
  - LEUKOPENIA [None]
  - GASTRITIS [None]
  - HEPATIC ENZYME INCREASED [None]
